FAERS Safety Report 8232322 (Version 8)
Quarter: 2015Q1

REPORT INFORMATION
  Report Type: Spontaneous
  Country: US (occurrence: US)
  Receive Date: 20111107
  Receipt Date: 20150204
  Transmission Date: 20150721
  Serious: Yes (Hospitalization, Other)
  Sender: FDA-Public Use
  Company Number: US-JNJFOC-20111011927

PATIENT
  Age: 83 Year
  Sex: Female
  Weight: 53.07 kg

DRUGS (11)
  1. LISTERINE WHITENING FLUORIDE ANTICAVITY ORIGINAL [Suspect]
     Active Substance: SODIUM MONOFLUOROPHOSPHATE
     Indication: BREATH ODOUR
     Dosage: NO MORE THAN A MOUTHFUL ONE TIME AFTER BREAKFAST IN THE AM.
     Route: 048
     Dates: end: 20110330
  2. ALL OTHER THERAPEUTIC PRODUCTS [Concomitant]
     Active Substance: UNSPECIFIED INGREDIENT
     Indication: MUSCLE SPASMS
     Route: 065
  3. GLYBURIDE. [Concomitant]
     Active Substance: GLYBURIDE
     Route: 065
  4. UNKNOWN MEDICATION [Concomitant]
     Active Substance: UNSPECIFIED INGREDIENT
     Indication: ANTICHOLINERGIC SYNDROME
     Route: 065
  5. LISTERINE WHITENING FLUORIDE ANTICAVITY ORIGINAL [Suspect]
     Active Substance: SODIUM MONOFLUOROPHOSPHATE
     Indication: DENTAL DISORDER PROPHYLAXIS
     Dosage: NO MORE THAN A MOUTHFUL ONE TIME AFTER BREAKFAST IN THE AM.
     Route: 048
     Dates: end: 20110330
  6. ASPIRIN. [Concomitant]
     Active Substance: ASPIRIN
  7. DIGOXIN. [Concomitant]
     Active Substance: DIGOXIN
     Route: 065
  8. PRADAXA [Concomitant]
     Active Substance: DABIGATRAN ETEXILATE MESYLATE
     Indication: ANTICOAGULANT THERAPY
     Route: 065
  9. LISINOPRIL. [Concomitant]
     Active Substance: LISINOPRIL
     Indication: PRODUCT USED FOR UNKNOWN INDICATION
     Route: 065
  10. PROTONIX [Concomitant]
     Active Substance: PANTOPRAZOLE SODIUM
     Indication: GASTROINTESTINAL DISORDER
     Route: 065
  11. DILTIAZEM [Concomitant]
     Active Substance: DILTIAZEM
     Indication: CARDIOVASCULAR DISORDER
     Route: 065

REACTIONS (9)
  - Toothache [Not Recovered/Not Resolved]
  - Atrial fibrillation [Not Recovered/Not Resolved]
  - Loss of consciousness [Not Recovered/Not Resolved]
  - Incorrect dose administered [Recovered/Resolved]
  - Hypoaesthesia oral [Not Recovered/Not Resolved]
  - Blood glucose decreased [Not Recovered/Not Resolved]
  - Oral pain [Not Recovered/Not Resolved]
  - Gingival pain [Not Recovered/Not Resolved]
  - Mastication disorder [Not Recovered/Not Resolved]

NARRATIVE: CASE EVENT DATE: 2011
